FAERS Safety Report 17058071 (Version 3)
Quarter: 2020Q1

REPORT INFORMATION
  Report Type: Spontaneous
  Country: GB (occurrence: GB)
  Receive Date: 20191121
  Receipt Date: 20200116
  Transmission Date: 20200409
  Serious: Yes (Hospitalization, Other)
  Sender: FDA-Public Use
  Company Number: GB-PFIZER INC-2019497547

PATIENT
  Age: 65 Year
  Sex: Female

DRUGS (2)
  1. FLUAD NOS [Suspect]
     Active Substance: INFLUENZA VIRUS VACCINE
     Indication: INFLUENZA IMMUNISATION
     Dosage: UNK
     Dates: start: 20181112
  2. TAZOCIN [Suspect]
     Active Substance: PIPERACILLIN SODIUM\TAZOBACTAM SODIUM
     Indication: SEPSIS
     Dosage: UNK
     Route: 042
     Dates: start: 20190409

REACTIONS (23)
  - Anaphylactic reaction [Unknown]
  - Off label use [Unknown]
  - Product administered at inappropriate site [Unknown]
  - Skin mass [Unknown]
  - Drug ineffective for unapproved indication [Unknown]
  - Infection [Recovered/Resolved]
  - Influenza [Unknown]
  - Night sweats [Unknown]
  - Pain of skin [Unknown]
  - Vein disorder [Recovered/Resolved]
  - Fatigue [Recovering/Resolving]
  - Sepsis [Unknown]
  - Myalgia [Recovered/Resolved]
  - Pain [Recovering/Resolving]
  - Ill-defined disorder [Unknown]
  - Autoimmune disorder [Unknown]
  - Pain in extremity [Recovering/Resolving]
  - Malaise [Recovering/Resolving]
  - Breast pain [Recovering/Resolving]
  - Immune system disorder [Unknown]
  - Injection site bruising [Recovered/Resolved]
  - Contusion [Recovered/Resolved]
  - Nodule [Unknown]

NARRATIVE: CASE EVENT DATE: 20181112
